FAERS Safety Report 7751674-9 (Version None)
Quarter: 2011Q3

REPORT INFORMATION
  Report Type: 
  Country: None (occurrence: None)
  Receive Date: 20110914
  Receipt Date: 20110910
  Transmission Date: 20111222
  Serious: Yes (Hospitalization)
  Sender: FDA-Public Use
  Company Number: US-BRISTOL-MYERS SQUIBB COMPANY-15928575

PATIENT
  Age: 83 Year
  Sex: Female
  Weight: 46 kg

DRUGS (2)
  1. IPILIMUMAB [Suspect]
     Indication: MALIGNANT MELANOMA
     Dosage: LAST DOSE:15JUL2011 10MG/KG OVER 90MINS
     Route: 042
     Dates: start: 20110513, end: 20110715
  2. LEUKINE [Suspect]
     Indication: MALIGNANT MELANOMA
     Dosage: LAST DOSE:28JUL2011 250MCG/DAY ON DAYS 1-14
     Route: 058
     Dates: start: 20110513, end: 20110728

REACTIONS (3)
  - DIARRHOEA [None]
  - FATIGUE [None]
  - DEHYDRATION [None]
